FAERS Safety Report 4625483-3 (Version None)
Quarter: 2005Q2

REPORT INFORMATION
  Report Type: 
  Country: None (occurrence: None)
  Receive Date: 20050401
  Receipt Date: 20050323
  Transmission Date: 20051028
  Serious: Yes (Other)
  Sender: FDA-Public Use
  Company Number: GB-JNJFOC-20050305858

PATIENT
  Sex: Female
  Weight: 70 kg

DRUGS (8)
  1. REMICADE [Suspect]
     Indication: RHEUMATOID ARTHRITIS
     Route: 042
  2. METHOTREXATE [Concomitant]
  3. HCQ [Concomitant]
  4. HRT [Concomitant]
  5. THYROXINE [Concomitant]
  6. CELECOXIB [Concomitant]
  7. FOLIC ACID [Concomitant]
  8. ALENDRONATE SODIUM [Concomitant]

REACTIONS (1)
  - BASAL CELL CARCINOMA [None]
